FAERS Safety Report 7889994-X (Version None)
Quarter: 2011Q4

REPORT INFORMATION
  Report Type: 
  Country: None (occurrence: None)
  Receive Date: 20111103
  Receipt Date: 20111026
  Transmission Date: 20120403
  Serious: Yes (Hospitalization, Other)
  Sender: FDA-Public Use
  Company Number: PHHY2011PE95281

PATIENT
  Sex: Female

DRUGS (4)
  1. CITICOLINE [Concomitant]
     Dosage: UNK UKN, UNK
  2. CALCIUM [Concomitant]
     Dosage: UNK UKN, UNK
  3. LACTULOSE [Concomitant]
     Dosage: UNK UKN, UNK
  4. EXFORGE [Suspect]
     Indication: HYPERTENSION
     Dosage: 0.5 DF(160/5 MG) DAILY
     Dates: start: 20070531, end: 20110713

REACTIONS (10)
  - CEREBROVASCULAR ACCIDENT [None]
  - CONSTIPATION [None]
  - RESPIRATORY DISORDER [None]
  - PNEUMONIA [None]
  - VOMITING [None]
  - FACIAL PARESIS [None]
  - SOMNOLENCE [None]
  - CONVULSION [None]
  - HEMIPLEGIA [None]
  - HAEMORRHOIDS [None]
